FAERS Safety Report 8200700-1 (Version None)
Quarter: 2012Q1

REPORT INFORMATION
  Report Type: 
  Country: None (occurrence: None)
  Receive Date: 20120312
  Receipt Date: 20120302
  Transmission Date: 20120608
  Serious: Yes (Other)
  Sender: FDA-Public Use
  Company Number: CN-ASTELLAS-2012JP001834

PATIENT
  Age: 62 Year
  Sex: Male

DRUGS (3)
  1. SIMULECT [Concomitant]
     Indication: IMMUNE TOLERANCE INDUCTION
     Dosage: UNK
     Route: 065
  2. TACROLIMUS [Suspect]
     Indication: LIVER TRANSPLANT
     Dosage: 2 MG, UNKNOWN/D
     Route: 048
     Dates: start: 20111229, end: 20120130
  3. MYCOPHENOLATE MOFETIL [Concomitant]
     Indication: PROPHYLAXIS AGAINST TRANSPLANT REJECTION
     Dosage: UNK
     Route: 065

REACTIONS (3)
  - RESTLESSNESS [None]
  - HALLUCINATION [None]
  - INSOMNIA [None]
